FAERS Safety Report 9422323 (Version 2)
Quarter: 2013Q3

REPORT INFORMATION
  Report Type: Spontaneous
  Country: JP (occurrence: JP)
  Receive Date: 20130726
  Receipt Date: 20130802
  Transmission Date: 20140515
  Serious: Yes (Other)
  Sender: FDA-Public Use
  Company Number: JP-JNJFOC-20130714083

PATIENT
  Age: 4 Decade
  Sex: Female

DRUGS (3)
  1. REMICADE [Suspect]
     Indication: CROHN^S DISEASE
     Route: 042
  2. REMICADE [Suspect]
     Indication: CROHN^S DISEASE
     Route: 042
     Dates: start: 200810
  3. AZANIN [Suspect]
     Indication: CROHN^S DISEASE
     Route: 065
     Dates: start: 201010

REACTIONS (4)
  - Anal cancer [Recovering/Resolving]
  - Anal stenosis [Unknown]
  - Anal abscess [Unknown]
  - Myalgia [Unknown]
